FAERS Safety Report 7526211-4 (Version None)
Quarter: 2011Q2

REPORT INFORMATION
  Report Type: 
  Country: None (occurrence: None)
  Receive Date: 20110606
  Receipt Date: 20110225
  Transmission Date: 20111010
  Serious: Yes (Other)
  Sender: FDA-Public Use
  Company Number: US-BRISTOL-MYERS SQUIBB COMPANY-15590557

PATIENT
  Age: 39 Year
  Sex: Female

DRUGS (3)
  1. EFAVIRENZ [Suspect]
     Indication: HIV INFECTION
     Dates: start: 20100101
  2. BACTRIM [Suspect]
  3. ATRIPLA [Suspect]
     Indication: HIV INFECTION

REACTIONS (1)
  - RASH PRURITIC [None]
